FAERS Safety Report 5487251-2 (Version None)
Quarter: 2007Q4

REPORT INFORMATION
  Report Type: 
  Country: None (occurrence: None)
  Receive Date: 20071015
  Receipt Date: 20070719
  Transmission Date: 20080405
  Serious: Yes (Hospitalization)
  Sender: FDA-Public Use
  Company Number: CHPA2007US07563

PATIENT
  Sex: Female

DRUGS (3)
  1. CHOLECALCIFEROL (NCH)(CHOLECALCIFEROL) UNKNOWN [Suspect]
     Indication: HYPOPARATHYROIDISM
     Dosage: 150000 IU, QD FOR APPROX. 6 YEARS,; 5000 IU, QD,
  2. CALCIUM CARBONATE (NCH)(CALCIUM CARBONATE) CHEWABLE TABLET [Suspect]
     Dosage: 1500 MG, QD,
  3. CALCIUM(CALCIUM) [Suspect]
     Indication: HYPOPARATHYROIDISM
     Dosage: FOR APPROX. 6 YEARS,

REACTIONS (9)
  - AMNESIA [None]
  - CEREBROVASCULAR ACCIDENT [None]
  - CONFUSIONAL STATE [None]
  - HYPERVITAMINOSIS D [None]
  - INFARCTION [None]
  - MALIGNANT HYPERTENSION [None]
  - MENTAL STATUS CHANGES [None]
  - PERSONALITY CHANGE [None]
  - VASOSPASM [None]
